FAERS Safety Report 7608707-X (Version None)
Quarter: 2011Q3

REPORT INFORMATION
  Report Type: 
  Country: None (occurrence: None)
  Receive Date: 20110713
  Receipt Date: 20110713
  Transmission Date: 20111222
  Serious: Yes (Other)
  Sender: FDA-Public Use
  Company Number: None

PATIENT
  Sex: Male
  Weight: 70.3075 kg

DRUGS (2)
  1. PROPECIA [Suspect]
     Indication: PROPHYLAXIS
     Dosage: 1 MG 1 A DAY PO
     Route: 048
     Dates: start: 19990101, end: 20000101
  2. PROPECIA [Suspect]
     Indication: ALOPECIA
     Dosage: 1 MG 1 A DAY PO
     Route: 048
     Dates: start: 19990101, end: 20000101

REACTIONS (6)
  - DEPRESSION [None]
  - ANXIETY [None]
  - LOSS OF LIBIDO [None]
  - SEMEN VOLUME DECREASED [None]
  - ERECTILE DYSFUNCTION [None]
  - FATIGUE [None]
